FAERS Safety Report 18342050 (Version 1)
Quarter: 2020Q4

REPORT INFORMATION
  Report Type: Spontaneous
  Country: US (occurrence: US)
  Receive Date: 20201005
  Receipt Date: 20201005
  Transmission Date: 20210113
  Serious: No
  Sender: FDA-Public Use
  Company Number: US-SA-2020SA265941

PATIENT

DRUGS (1)
  1. DUPIXENT [Suspect]
     Active Substance: DUPILUMAB
     Indication: DERMATITIS ATOPIC
     Dosage: 600 MG, Q2M
     Route: 058
     Dates: start: 2017

REACTIONS (7)
  - Product use issue [Unknown]
  - Arthralgia [Unknown]
  - Pruritus [Unknown]
  - Therapeutic response shortened [Unknown]
  - Neck pain [Unknown]
  - Back pain [Unknown]
  - Sleep disorder [Unknown]

NARRATIVE: CASE EVENT DATE: 2017
